FAERS Safety Report 7159285-3 (Version None)
Quarter: 2010Q4

REPORT INFORMATION
  Report Type: 
  Country: None (occurrence: None)
  Receive Date: 20101214
  Receipt Date: 20100802
  Transmission Date: 20110411
  Serious: No
  Sender: FDA-Public Use
  Company Number: US-ASTRAZENECA-2010SE36096

PATIENT
  Age: 75 Year
  Sex: Female
  Weight: 61.2 kg

DRUGS (4)
  1. CRESTOR [Suspect]
     Route: 048
     Dates: start: 20060101
  2. ATENOLOL [Concomitant]
  3. FELODIPINE [Concomitant]
  4. VITAMINS [Concomitant]

REACTIONS (1)
  - NEUROPATHY PERIPHERAL [None]
